FAERS Safety Report 6836260-7 (Version None)
Quarter: 2010Q3

REPORT INFORMATION
  Report Type: 
  Country: None (occurrence: None)
  Receive Date: 20100713
  Receipt Date: 20090820
  Transmission Date: 20110219
  Serious: No
  Sender: FDA-Public Use
  Company Number: US-TYCO HEALTHCARE/MALLINCKRODT-T200901571

PATIENT
  Age: 49 Year
  Sex: Female

DRUGS (7)
  1. OXYCODONE HCL [Suspect]
     Indication: BACK PAIN
     Dosage: 1-2 TABLETS, Q4H, PM
     Route: 048
     Dates: start: 20090601, end: 20090820
  2. OXYCODONE HCL [Suspect]
     Indication: PAIN
  3. FENTANYL [Suspect]
     Indication: BACK PAIN
     Dosage: UG, Q 3 DAYS
     Route: 062
     Dates: start: 20090601, end: 20090820
  4. FENTANYL [Suspect]
     Indication: PAIN
     Dosage: 1 PATCH, Q 3 DAYS
     Route: 062
     Dates: start: 20090807
  5. CELEBREX [Concomitant]
     Indication: ARTHRITIS
     Dosage: UNK
     Route: 048
  6. ACCUPRIL [Concomitant]
     Indication: HYPERTENSION
     Dosage: 20 MG, QD
     Route: 048
  7. NORVASC [Concomitant]
     Indication: HYPERTENSION
     Dosage: 10 MG, QD
     Route: 048

REACTIONS (2)
  - INSOMNIA [None]
  - MUSCLE SPASMS [None]
